FAERS Safety Report 9822857 (Version 2)
Quarter: 2014Q1

REPORT INFORMATION
  Report Type: Spontaneous
  Country: US (occurrence: US)
  Receive Date: 20140116
  Receipt Date: 20140206
  Transmission Date: 20141002
  Serious: No
  Sender: FDA-Public Use
  Company Number: US-009507513-1401USA005627

PATIENT
  Sex: Female
  Weight: 54.42 kg

DRUGS (4)
  1. MIRALAX [Suspect]
     Indication: INTESTINAL OBSTRUCTION
     Dosage: 17 G, QAM
     Route: 048
     Dates: start: 201201, end: 201312
  2. MIRALAX [Suspect]
     Indication: CONSTIPATION
  3. LOPRESSOR [Concomitant]
     Indication: HYPERTENSION
     Dosage: 100 MG, BID
  4. NORVASC [Concomitant]
     Indication: HYPERTENSION
     Dosage: 50 MG, QD

REACTIONS (5)
  - Dry mouth [Not Recovered/Not Resolved]
  - Oral pain [Not Recovered/Not Resolved]
  - Lip exfoliation [Not Recovered/Not Resolved]
  - Tooth disorder [Not Recovered/Not Resolved]
  - Incorrect drug administration duration [Unknown]
